FAERS Safety Report 23308942 (Version 2)
Quarter: 2024Q1

REPORT INFORMATION
  Report Type: Spontaneous
  Country: GB (occurrence: GB)
  Receive Date: 20231218
  Receipt Date: 20240117
  Transmission Date: 20240409
  Serious: Yes (Death, Hospitalization, Other)
  Sender: FDA-Public Use
  Company Number: None

PATIENT
  Age: 65 Year

DRUGS (10)
  1. APIXABAN [Suspect]
     Active Substance: APIXABAN
     Indication: Product used for unknown indication
     Dosage: 2.5 MILLIGRAM, QD
     Route: 065
  2. DEXAMETHASONE [Concomitant]
     Active Substance: DEXAMETHASONE
     Dosage: 6 MILLIGRAM, QD
     Route: 065
     Dates: start: 20231129
  3. DEXAMETHASONE [Concomitant]
     Active Substance: DEXAMETHASONE
     Dosage: AS DIRECTED
     Route: 065
     Dates: start: 20231128
  4. ATORVASTATIN [Concomitant]
     Active Substance: ATORVASTATIN
     Dosage: 20 MILLIGRAM, QD
     Route: 065
  5. SODIUM BICARBONATE [Concomitant]
     Active Substance: SODIUM BICARBONATE
     Dosage: 2 DROP QD (INTO BOTH EARS FOR 5/7)
     Route: 065
     Dates: start: 20231004
  6. ACETAMINOPHEN [Concomitant]
     Active Substance: ACETAMINOPHEN
     Dosage: 500 MILLIGRAM, QD (500MG TO 1G QDS)
     Route: 065
     Dates: start: 20231130
  7. LANSOPRAZOLE [Concomitant]
     Active Substance: LANSOPRAZOLE
     Dosage: 30 MILLIGRAM, QD
     Route: 065
  8. GABAPENTIN [Concomitant]
     Active Substance: GABAPENTIN
     Dosage: 100 MILLIGRAM, QD (100MG TDS TO START AND INCREASE UPTO 400MG TDS AS PER NEUROLOGY)
     Route: 065
     Dates: start: 20231002
  9. CODEINE [Concomitant]
     Active Substance: CODEINE
     Dosage: 30 MILLIGRAM (TDS TO QDS)
     Route: 065
     Dates: start: 20231130
  10. FLUCLOXACILLIN [Concomitant]
     Active Substance: FLUCLOXACILLIN
     Dosage: 500 MILLIGRAM, QD (500MG QDS FOR 7/7)
     Route: 065
     Dates: start: 20231206

REACTIONS (5)
  - Haemorrhage intracranial [Fatal]
  - Loss of consciousness [Unknown]
  - Brain herniation [Unknown]
  - Cerebral mass effect [Unknown]
  - Cerebral haematoma [Unknown]
